FAERS Safety Report 5512552-9 (Version None)
Quarter: 2007Q4

REPORT INFORMATION
  Report Type: 
  Country: None (occurrence: None)
  Receive Date: 20071112
  Receipt Date: 20070913
  Transmission Date: 20080405
  Serious: No
  Sender: FDA-Public Use
  Company Number: A0681863A

PATIENT
  Age: 35 Year
  Sex: Female

DRUGS (3)
  1. AVANDAMET [Suspect]
     Dosage: 1TAB PER DAY
     Route: 048
     Dates: start: 20070613
  2. AVANDIA [Suspect]
     Route: 048
     Dates: start: 20070313, end: 20070613
  3. LANTUS [Concomitant]

REACTIONS (5)
  - DEPRESSION [None]
  - DRUG INEFFECTIVE [None]
  - MIGRAINE [None]
  - MOOD SWINGS [None]
  - WEIGHT DECREASED [None]
